FAERS Safety Report 13397266 (Version 2)
Quarter: 2017Q2

REPORT INFORMATION
  Report Type: Spontaneous
  Country: FR (occurrence: FR)
  Receive Date: 20170403
  Receipt Date: 20170417
  Transmission Date: 20170830
  Serious: Yes (Death)
  Sender: FDA-Public Use
  Company Number: FR-TEVA-753309ROM

PATIENT
  Age: 34 Year
  Sex: Male

DRUGS (6)
  1. DIAZEPAM. [Concomitant]
     Active Substance: DIAZEPAM
     Route: 065
  2. LOXAPINE. [Suspect]
     Active Substance: LOXAPINE
     Route: 030
  3. TROPATEPINE [Concomitant]
     Active Substance: TROPATEPINE
     Indication: AGITATION
     Route: 065
  4. QUETIAPINE. [Suspect]
     Active Substance: QUETIAPINE
     Indication: AGITATION
     Dosage: 600 MILLIGRAM DAILY;
     Route: 065
     Dates: start: 20120605
  5. LOXAPINE. [Suspect]
     Active Substance: LOXAPINE
     Route: 048
  6. VALPROIC ACID. [Concomitant]
     Active Substance: VALPROIC ACID
     Route: 065

REACTIONS (11)
  - Sepsis [Fatal]
  - Necrotising colitis [Fatal]
  - Hepatic enzyme increased [Fatal]
  - Systemic mycosis [Fatal]
  - Large intestine perforation [Fatal]
  - Metabolic acidosis [Fatal]
  - Multiple organ dysfunction syndrome [Fatal]
  - Systemic bacterial infection [Fatal]
  - Intestinal ischaemia [Fatal]
  - Haemorrhage [Fatal]
  - Cardiac arrest [Fatal]
